FAERS Safety Report 8506854-1 (Version None)
Quarter: 2012Q3

REPORT INFORMATION
  Report Type: 
  Country: None (occurrence: None)
  Receive Date: 20120712
  Receipt Date: 20120709
  Transmission Date: 20120928
  Serious: No
  Sender: FDA-Public Use
  Company Number: US-PFIZER INC-2012121175

PATIENT
  Sex: Female

DRUGS (9)
  1. DDAVP [Concomitant]
     Indication: HYPOPITUITARISM
     Dosage: 0.1 MG, 1X/DAY BEDTIME
     Dates: start: 20111009
  2. SYNTHROID [Concomitant]
     Indication: HYPOPITUITARISM
     Dosage: 100 UG, 1X/DAY
     Dates: start: 20120123
  3. DILAUDID [Concomitant]
     Indication: PAIN
     Dosage: 4 MG, AS NEEDED
     Dates: start: 20120111
  4. YASMIN [Concomitant]
     Indication: HYPOPITUITARISM
     Dosage: 3-0.03MG, 1X/DAY
     Dates: start: 20120123
  5. GENOTROPIN [Suspect]
     Indication: HYPOPITUITARISM
     Dosage: 0.2 MG/DAY, 7 INJECTIONS PER WEEK
     Route: 058
  6. CORTEF [Concomitant]
     Indication: HYPOPITUITARISM
     Dosage: 10 MG, 2X/DAY
     Dates: start: 20111114
  7. OXYCONTIN [Concomitant]
     Indication: PAIN
     Dosage: 20 MG, AS NEEDED
     Dates: start: 20120111
  8. PHENERGAN HCL [Concomitant]
     Indication: NAUSEA
     Dosage: 25 MG, AS NEEDED
     Dates: start: 20111009
  9. KEPPRA [Concomitant]
     Indication: CONVULSION
     Dosage: 1000 MG, 2X/DAY
     Dates: start: 20111009

REACTIONS (1)
  - INJECTION SITE HAEMORRHAGE [None]
